FAERS Safety Report 9258817 (Version 1)
Quarter: 2013Q2

REPORT INFORMATION
  Report Type: Spontaneous
  Country: JP (occurrence: JP)
  Receive Date: 20130426
  Receipt Date: 20130426
  Transmission Date: 20140414
  Serious: Yes (Other)
  Sender: FDA-Public Use
  Company Number: JP-GE HEALTHCARE MEDICAL DIAGNOSTICS-OMPQ-NO-1303S-0350

PATIENT
  Age: 74 Year
  Sex: Female

DRUGS (7)
  1. OMNIPAQUE [Suspect]
     Indication: LUNG NEOPLASM MALIGNANT
     Route: 042
     Dates: start: 20130308, end: 20130308
  2. OMNIPAQUE [Suspect]
     Indication: DIAGNOSTIC PROCEDURE
  3. ERLOTINIB [Concomitant]
     Indication: LUNG NEOPLASM MALIGNANT
     Route: 048
  4. PRAVASTATIN [Concomitant]
     Route: 048
  5. UBIRON [Concomitant]
     Route: 048
  6. MAGMITT [Concomitant]
     Route: 048
  7. FAMOTIDINE D [Concomitant]
     Route: 048

REACTIONS (3)
  - Blood potassium decreased [Recovered/Resolved]
  - Anaphylactic shock [Recovered/Resolved]
  - Tonic convulsion [Recovered/Resolved]
